FAERS Safety Report 4749727-2 (Version None)
Quarter: 2005Q3

REPORT INFORMATION
  Report Type: 
  Country: None (occurrence: None)
  Receive Date: 20050819
  Receipt Date: 20050819
  Transmission Date: 20060218
  Serious: Yes (Other)
  Sender: FDA-Public Use
  Company Number: None

PATIENT
  Age: 39 Year
  Sex: Female
  Weight: 63.5036 kg

DRUGS (7)
  1. VAGISIL [Suspect]
     Indication: GENITAL PRURITUS FEMALE
     Dates: start: 20020101, end: 20020301
  2. PREDNISONE TAB [Concomitant]
  3. VALTREX [Concomitant]
  4. DNCB [Concomitant]
  5. ALDARA [Concomitant]
  6. MONISTAT [Concomitant]
  7. DIFLUCAN [Concomitant]

REACTIONS (7)
  - DIFFICULTY IN WALKING [None]
  - DYSPAREUNIA [None]
  - DYSURIA [None]
  - OVERDOSE [None]
  - RASH PAPULAR [None]
  - SKIN LESION [None]
  - SKIN ULCER [None]
